FAERS Safety Report 6905661-0 (Version None)
Quarter: 2010Q3

REPORT INFORMATION
  Report Type: 
  Country: None (occurrence: None)
  Receive Date: 20100804
  Receipt Date: 20100728
  Transmission Date: 20110219
  Serious: Yes (Other)
  Sender: FDA-Public Use
  Company Number: US-BRISTOL-MYERS SQUIBB COMPANY-15217110

PATIENT
  Age: 69 Year
  Sex: Male
  Weight: 84 kg

DRUGS (1)
  1. IXEMPRA KIT [Suspect]
     Indication: PROSTATE CANCER
     Dosage: 20MG/M2 OVER 1HR ON DAYS 1, 8+15(+/- 1 DAY). CYCLE:28 DAYS. 08/07/2006
     Route: 042
     Dates: start: 20060807, end: 20061017

REACTIONS (3)
  - HYPOALBUMINAEMIA [None]
  - INJECTION SITE EXTRAVASATION [None]
  - LYMPHOPENIA [None]
